FAERS Safety Report 12285358 (Version 1)
Quarter: 2016Q2

REPORT INFORMATION
  Report Type: Spontaneous
  Country: US (occurrence: None)
  Receive Date: 20160419
  Receipt Date: 20160419
  Transmission Date: 20160815
  Serious: Yes (Hospitalization)
  Sender: FDA-Public Use
  Company Number: None

PATIENT
  Age: 57 Year
  Sex: Female
  Weight: 56.7 kg

DRUGS (2)
  1. CYTARABINE. [Suspect]
     Active Substance: CYTARABINE
  2. CLADRIBINE. [Suspect]
     Active Substance: CLADRIBINE

REACTIONS (10)
  - Malaise [None]
  - Ejection fraction decreased [None]
  - Abdominal pain [None]
  - Staphylococcal infection [None]
  - Poor venous access [None]
  - Enterococcal infection [None]
  - Device related infection [None]
  - Febrile neutropenia [None]
  - Diarrhoea [None]
  - Diastolic dysfunction [None]

NARRATIVE: CASE EVENT DATE: 20160415
